FAERS Safety Report 7066483-6 (Version None)
Quarter: 2010Q4

REPORT INFORMATION
  Report Type: 
  Country: None (occurrence: None)
  Receive Date: 20101027
  Receipt Date: 20100427
  Transmission Date: 20110411
  Serious: No
  Sender: FDA-Public Use
  Company Number: US-WYE-H14927310

PATIENT
  Sex: Female
  Weight: 90.8 kg

DRUGS (4)
  1. PREMPRO [Suspect]
     Indication: MENOPAUSAL SYMPTOMS
     Dosage: NOT SPECIFIED
     Route: 048
     Dates: start: 20100401
  2. PREMPRO [Suspect]
     Indication: HOT FLUSH
  3. PREMPRO [Suspect]
     Indication: INSOMNIA
  4. ACETYLSALICYLIC ACID [Suspect]
     Dosage: TOOK 2 ASPIRIN IN THE MORNING
     Route: 048
     Dates: start: 20100426

REACTIONS (2)
  - MENSTRUATION IRREGULAR [None]
  - THERAPEUTIC RESPONSE UNEXPECTED [None]
